FAERS Safety Report 13102547 (Version 1)
Quarter: 2017Q1

REPORT INFORMATION
  Report Type: Spontaneous
  Country: None (occurrence: US)
  Receive Date: 20170110
  Receipt Date: 20170110
  Transmission Date: 20170428
  Serious: No
  Sender: FDA-Public Use
  Company Number: US-MEDAC PHARMA, INC.-1061883

PATIENT
  Age: 61 Year
  Sex: Male
  Weight: 79.55 kg

DRUGS (2)
  1. CRESTOR [Concomitant]
     Active Substance: ROSUVASTATIN CALCIUM
  2. RASUVO [Suspect]
     Active Substance: METHOTREXATE SODIUM
     Indication: PSORIASIS
     Dates: start: 20161218

REACTIONS (1)
  - Fatigue [Unknown]

NARRATIVE: CASE EVENT DATE: 20161219
